FAERS Safety Report 10203921 (Version 1)
Quarter: 2014Q2

REPORT INFORMATION
  Report Type: Spontaneous
  Country: GB (occurrence: GB)
  Receive Date: 20140529
  Receipt Date: 20140529
  Transmission Date: 20141212
  Serious: Yes (Other)
  Sender: FDA-Public Use
  Company Number: PHHY2014GB061678

PATIENT
  Age: 18 Year
  Sex: Male

DRUGS (9)
  1. CODEINE PHOSPHATE [Suspect]
     Dosage: 30 MG, QID
  2. MORPHINE [Suspect]
     Dosage: 25 MG
     Route: 048
  3. MORPHINE [Suspect]
     Dosage: 60 MG
     Route: 048
  4. MORPHINE [Suspect]
     Dosage: 50 MG
  5. MORPHINE [Suspect]
     Dosage: 3 MG
     Route: 042
  6. TRAMADOL [Suspect]
     Dosage: 100 MG
  7. TRAMADOL [Suspect]
     Dosage: 100 MG
  8. HYDROCORTISONE [Concomitant]
     Dosage: 20 MG, DAILY
  9. PARACETAMOL [Concomitant]

REACTIONS (3)
  - Adrenal insufficiency [Recovered/Resolved]
  - Blood testosterone decreased [Recovered/Resolved]
  - Blood cortisol decreased [Recovered/Resolved]
